FAERS Safety Report 10948941 (Version 3)
Quarter: 2015Q2

REPORT INFORMATION
  Report Type: Report from Study
  Country: JP (occurrence: JP)
  Receive Date: 20150324
  Receipt Date: 20150506
  Transmission Date: 20150821
  Serious: Yes (Other)
  Sender: FDA-Public Use
  Company Number: JP-SA-2015SA021854

PATIENT
  Sex: Male

DRUGS (5)
  1. JEVTANA [Suspect]
     Active Substance: CABAZITAXEL
     Indication: PROSTATE CANCER
     Route: 042
     Dates: start: 20150312, end: 20150312
  2. DECADRON [Concomitant]
     Active Substance: DEXAMETHASONE
     Dosage: 20 MG/DAY (PSL EQUIVALENT)
     Dates: start: 20150212
  3. G-LASTA [Concomitant]
     Active Substance: PEGFILGRASTIM
     Indication: PROPHYLAXIS
     Dates: start: 20150214, end: 20150214
  4. JEVTANA [Suspect]
     Active Substance: CABAZITAXEL
     Indication: PROSTATE CANCER
     Route: 042
     Dates: start: 20150212, end: 20150212
  5. PREDONINE [Concomitant]
     Active Substance: PREDNISOLONE\PREDNISOLONE ACETATE\PREDNISOLONE SODIUM SUCCINATE
     Indication: ANALGESIC THERAPY
     Dates: start: 20150312

REACTIONS (2)
  - Neutrophil count decreased [Recovered/Resolved]
  - Hypotension [Recovered/Resolved]

NARRATIVE: CASE EVENT DATE: 20150316
